FAERS Safety Report 9337769 (Version 2)
Quarter: 2013Q2

REPORT INFORMATION
  Report Type: Report from Study
  Country: FR (occurrence: FR)
  Receive Date: 20130607
  Receipt Date: 20130618
  Transmission Date: 20140414
  Serious: Yes (Death, Hospitalization)
  Sender: FDA-Public Use
  Company Number: FR-PFIZER INC-2013169055

PATIENT
  Sex: Male
  Weight: 68 kg

DRUGS (2)
  1. TORISEL [Suspect]
     Indication: MANTLE CELL LYMPHOMA
     Dosage: 175 MG, WEEKLY
     Route: 042
     Dates: start: 20111216, end: 20111230
  2. TORISEL [Suspect]
     Dosage: 75 MG, WEEKLY
     Route: 042
     Dates: start: 20120106

REACTIONS (6)
  - Disease progression [Fatal]
  - Mantle cell lymphoma [Fatal]
  - Lung infection [Unknown]
  - Hyperthermia [Unknown]
  - Diarrhoea [Unknown]
  - Decreased appetite [Unknown]
